FAERS Safety Report 6941652-1 (Version None)
Quarter: 2010Q3

REPORT INFORMATION
  Report Type: 
  Country: None (occurrence: None)
  Receive Date: 20100825
  Receipt Date: 20100816
  Transmission Date: 20110219
  Serious: Yes (Other)
  Sender: FDA-Public Use
  Company Number: US-JNJFOC-20100507619

PATIENT
  Sex: Male
  Weight: 72.58 kg

DRUGS (10)
  1. REMICADE [Suspect]
     Indication: COLITIS ULCERATIVE
     Route: 042
  2. CARTIA XT [Concomitant]
     Indication: CARDIAC DISORDER
  3. ATENOLOL [Concomitant]
  4. LIPITOR [Concomitant]
  5. LIALDA [Concomitant]
  6. CANASA [Concomitant]
  7. METFORMIN HCL [Concomitant]
  8. CYMBALTA [Concomitant]
  9. MERCAPTOPURINE [Concomitant]
  10. LYRICA [Concomitant]

REACTIONS (2)
  - FATIGUE [None]
  - SPINAL FUSION SURGERY [None]
